FAERS Safety Report 10687642 (Version 1)
Quarter: 2014Q4

REPORT INFORMATION
  Report Type: Report from Study
  Country: US (occurrence: None)
  Receive Date: 20141230
  Receipt Date: 20141230
  Transmission Date: 20150529
  Serious: Yes (Disabling)
  Sender: FDA-Public Use
  Company Number: 201411IM007578

PATIENT
  Age: 71 Year
  Sex: Male

DRUGS (1)
  1. ESBRIET [Suspect]
     Active Substance: PIRFENIDONE
     Indication: IDIOPATHIC PULMONARY FIBROSIS
     Dosage: 1 D, 19
     Route: 048
     Dates: start: 201411

REACTIONS (3)
  - Urticaria [None]
  - Rash pruritic [None]
  - Dyspnoea [None]

NARRATIVE: CASE EVENT DATE: 201411
